FAERS Safety Report 18368069 (Version 1)
Quarter: 2020Q4

REPORT INFORMATION
  Report Type: Spontaneous
  Country: FR (occurrence: FR)
  Receive Date: 20201009
  Receipt Date: 20201009
  Transmission Date: 20210114
  Serious: Yes (Hospitalization)
  Sender: FDA-Public Use
  Company Number: FR-009507513-2010FRA002690

PATIENT
  Age: 77 Year
  Sex: Female
  Weight: 75.5 kg

DRUGS (2)
  1. INLYTA [Suspect]
     Active Substance: AXITINIB
     Indication: RENAL NEOPLASM
     Dosage: 10 MILLIGRAM, QD
     Route: 048
     Dates: start: 20200701, end: 20200902
  2. KEYTRUDA [Suspect]
     Active Substance: PEMBROLIZUMAB
     Indication: RENAL NEOPLASM
     Dosage: 200 MILLIGRAM, QD
     Route: 041
     Dates: start: 20200701, end: 20200812

REACTIONS (2)
  - Spinal pain [Recovered/Resolved]
  - Arthralgia [Recovered/Resolved]

NARRATIVE: CASE EVENT DATE: 20200715
